FAERS Safety Report 9740150 (Version 4)
Quarter: 2014Q1

REPORT INFORMATION
  Report Type: Spontaneous
  Country: US (occurrence: US)
  Receive Date: 20131209
  Receipt Date: 20140304
  Transmission Date: 20141002
  Serious: Yes (Other)
  Sender: FDA-Public Use
  Company Number: US-GILEAD-2013-0089405

PATIENT
  Age: 47 Year
  Sex: Male

DRUGS (5)
  1. LETAIRIS [Suspect]
     Indication: PULMONARY HYPERTENSION
     Dosage: 5 MG, QD
     Route: 048
     Dates: start: 20130429
  2. LETAIRIS [Suspect]
     Indication: HEPATIC CIRRHOSIS
  3. LETAIRIS [Suspect]
     Indication: PORTOPULMONARY HYPERTENSION
  4. ADCIRCA [Concomitant]
  5. VENTAVIS [Concomitant]

REACTIONS (4)
  - Hepatic cirrhosis [Unknown]
  - Hernia [Unknown]
  - Cyst [Unknown]
  - Varicose vein [Unknown]
